FAERS Safety Report 12990848 (Version 1)
Quarter: 2016Q4

REPORT INFORMATION
  Report Type: Spontaneous
  Country: US (occurrence: US)
  Receive Date: 20161130
  Receipt Date: 20161130
  Transmission Date: 20170207
  Serious: Yes (Other)
  Sender: FDA-Public Use
  Company Number: None

PATIENT
  Age: 63 Year
  Sex: Female
  Weight: 83.7 kg

DRUGS (22)
  1. CROMOLYN SODIUM. [Concomitant]
     Active Substance: CROMOLYN SODIUM
  2. PROBIOTIC [Concomitant]
     Active Substance: PROBIOTICS NOS
  3. YIN CHIAO [Concomitant]
  4. ZONG GAN LING [Concomitant]
  5. CLONIDINE. [Concomitant]
     Active Substance: CLONIDINE
  6. POTASSIUM CHLORIDE. [Concomitant]
     Active Substance: POTASSIUM CHLORIDE
  7. MELATONIN [Concomitant]
     Active Substance: MELATONIN
  8. ARMOUR THYROID [Concomitant]
     Active Substance: THYROID, PORCINE
  9. VITAMIN B12 [Concomitant]
     Active Substance: CYANOCOBALAMIN
  10. GAS-X [Concomitant]
     Active Substance: DIMETHICONE
  11. CARBIDOPA 25 MG TABLET ALVOGEN [Suspect]
     Active Substance: CARBIDOPA
     Indication: MAST CELL ACTIVATION SYNDROME
     Dosage: ?          OTHER FREQUENCY:3 TABS 3 X DAILY;?
     Route: 048
     Dates: end: 20161121
  12. FORTEO [Concomitant]
     Active Substance: TERIPARATIDE
  13. ALLEGRA(FEXOFENADINE) [Concomitant]
  14. SLO NIACIN [Concomitant]
  15. ALLERCLEAR (LORATDINE) [Concomitant]
  16. GUANFACINE. [Concomitant]
     Active Substance: GUANFACINE
  17. METOPROLOL TARTRATE. [Concomitant]
     Active Substance: METOPROLOL TARTRATE
  18. TYLENOL [Concomitant]
     Active Substance: ACETAMINOPHEN
  19. VITAMIN D3 [Concomitant]
     Active Substance: CHOLECALCIFEROL
  20. VITAMIN K2 [Concomitant]
     Active Substance: MENAQUINONE 6
  21. HCTZ [Concomitant]
     Active Substance: HYDROCHLOROTHIAZIDE
  22. VITAMIN C [Concomitant]
     Active Substance: ASCORBIC ACID

REACTIONS (28)
  - Neck pain [None]
  - Pyrexia [None]
  - Somnolence [None]
  - Cough [None]
  - Asthma [None]
  - Neuropathy peripheral [None]
  - Drug level increased [None]
  - Confusional state [None]
  - Mast cell activation syndrome [None]
  - Condition aggravated [None]
  - Heart rate increased [None]
  - Agitation [None]
  - Pain in extremity [None]
  - Dysphonia [None]
  - Therapy change [None]
  - Feeling abnormal [None]
  - Hypobarism [None]
  - Irritability [None]
  - Depression [None]
  - Musculoskeletal pain [None]
  - Dyspnoea [None]
  - Hypertension [None]
  - Musculoskeletal stiffness [None]
  - Muscle spasms [None]
  - Back pain [None]
  - Headache [None]
  - Jaw disorder [None]
  - Fatigue [None]

NARRATIVE: CASE EVENT DATE: 20161118
